FAERS Safety Report 15351527 (Version 2)
Quarter: 2018Q4

REPORT INFORMATION
  Report Type: Spontaneous
  Country: CH (occurrence: CH)
  Receive Date: 20180905
  Receipt Date: 20181009
  Transmission Date: 20190204
  Serious: Yes (Other)
  Sender: FDA-Public Use
  Company Number: CH-LPDUSPRD-20181610

PATIENT
  Age: 14 Year
  Sex: Female
  Weight: 55.9 kg

DRUGS (1)
  1. VENOFER [Suspect]
     Active Substance: IRON SUCROSE
     Dosage: 500ML SODIUM CHLORIDE (500 MG)
     Route: 041
     Dates: start: 20180423, end: 20180423

REACTIONS (8)
  - Asthmatic crisis [Unknown]
  - Malaise [Recovered/Resolved]
  - Feeling hot [Recovered/Resolved]
  - Vertigo [Recovered/Resolved]
  - Burning sensation [Recovered/Resolved]
  - Incorrect drug administration rate [Unknown]
  - Overdose [Unknown]
  - Pruritus [Recovered/Resolved]

NARRATIVE: CASE EVENT DATE: 20180423
